FAERS Safety Report 23717557 (Version 1)
Quarter: 2024Q2

REPORT INFORMATION
  Report Type: Spontaneous
  Country: US (occurrence: None)
  Receive Date: 20240405
  Receipt Date: 20240405
  Transmission Date: 20240716
  Serious: Yes (Other)
  Sender: FDA-Public Use
  Company Number: None

PATIENT
  Age: 22 Year
  Sex: Male
  Weight: 81.9 kg

DRUGS (1)
  1. HUMIRA [Suspect]
     Active Substance: ADALIMUMAB
     Indication: Uveitis
     Dosage: 40 MG EVERY 2 WEEKS SUBCUTANEOUS?
     Route: 058
     Dates: start: 20220401, end: 20220402

REACTIONS (2)
  - Injection site reaction [None]
  - Hypersensitivity [None]

NARRATIVE: CASE EVENT DATE: 20220401
